FAERS Safety Report 8737666 (Version 2)
Quarter: 2013Q4

REPORT INFORMATION
  Report Type: Report from Study
  Country: ES (occurrence: ES)
  Receive Date: 20120822
  Receipt Date: 20131031
  Transmission Date: 20140711
  Serious: Yes (Death)
  Sender: FDA-Public Use
  Company Number: ES-009507513-1208USA003736

PATIENT
  Sex: 0

DRUGS (2)
  1. DEXAMETHASONE [Suspect]
     Indication: SOFT TISSUE NEOPLASM
     Dosage: UNK
     Route: 048
  2. TRABECTEDIN [Suspect]
     Indication: SOFT TISSUE NEOPLASM
     Dosage: 1500 MICROGRAM PER SQ METER, Q3W
     Route: 042

REACTIONS (1)
  - Death [Fatal]
